FAERS Safety Report 24210627 (Version 1)
Quarter: 2024Q3

REPORT INFORMATION
  Report Type: Spontaneous
  Country: US (occurrence: None)
  Receive Date: 20240813
  Receipt Date: 20240813
  Transmission Date: 20241017
  Serious: No
  Sender: Public
  Company Number: None

PATIENT
  Sex: Female

DRUGS (19)
  1. AZELASTINE [Suspect]
     Active Substance: AZELASTINE\AZELASTINE HYDROCHLORIDE
     Indication: Rhinitis allergic
     Dosage: 2 PUFFS ONCE NASAL SPRAY ?
     Route: 045
     Dates: start: 20240726, end: 20240726
  2. HYDROCHLOROTHIAZIDE [Concomitant]
     Active Substance: HYDROCHLOROTHIAZIDE
  3. METOPROLOL [Concomitant]
  4. FAMOTIDINE [Concomitant]
     Active Substance: FAMOTIDINE
  5. PANTOPROZOL [Concomitant]
  6. SIMBRINZA [Concomitant]
     Active Substance: BRIMONIDINE TARTRATE\BRINZOLAMIDE
  7. TIA FLU PROST [Concomitant]
  8. MOV [Concomitant]
  9. VITAMIN K [Concomitant]
     Active Substance: PHYTONADIONE
  10. MAGNESIUM [Concomitant]
  11. VITAMIN C [Concomitant]
     Active Substance: ASCORBIC ACID
  12. FISH OIL [Concomitant]
     Active Substance: FISH OIL
  13. COENZYME Q10 [Concomitant]
     Active Substance: DIETARY SUPPLEMENT\UBIDECARENONE
  14. HERBALS\TURMERIC [Concomitant]
     Active Substance: HERBALS\TURMERIC
  15. OSTED RX FLEX [Concomitant]
  16. TYLENOL [Concomitant]
  17. CA [Concomitant]
  18. VITAMIN D NOS [Concomitant]
     Active Substance: CHOLECALCIFEROL\ERGOCALCIFEROL
  19. LUTEIN [Concomitant]

REACTIONS (2)
  - Atrial fibrillation [None]
  - Heart rate increased [None]

NARRATIVE: CASE EVENT DATE: 20240726
